FAERS Safety Report 24758886 (Version 1)
Quarter: 2024Q4

REPORT INFORMATION
  Report Type: Spontaneous
  Country: GB (occurrence: GB)
  Receive Date: 20241220
  Receipt Date: 20241220
  Transmission Date: 20250114
  Serious: Yes (Other)
  Sender: ACCORD
  Company Number: None

PATIENT
  Age: 88 Year
  Sex: Female
  Weight: 90 kg

DRUGS (3)
  1. RAMIPRIL [Suspect]
     Active Substance: RAMIPRIL
     Indication: Cardiac failure congestive
     Dosage: ONE TO BE TAKEN EACH DAY
     Dates: start: 20241008
  2. BALNEUM PLUS [Concomitant]
     Indication: Pruritus
     Dosage: APPLY TO UPPER ARMS FOR ITCHING WHEN REQUIRED.?500G
     Dates: start: 20241002, end: 20241114
  3. SPIKEVAX [Concomitant]
     Active Substance: CX-046684
     Dosage: STRENGTH: 0.1MG/ML?0.5 ML INTRAMUSCULAR
     Dates: start: 20241018, end: 20241018

REACTIONS (2)
  - Hallucination, visual [Recovered/Resolved]
  - Diarrhoea [Recovered/Resolved]
